FAERS Safety Report 6047191-7 (Version None)
Quarter: 2009Q1

REPORT INFORMATION
  Report Type: 
  Country: None (occurrence: None)
  Receive Date: 20090122
  Receipt Date: 20090109
  Transmission Date: 20090719
  Serious: Yes (Death, Life-Threatening)
  Sender: FDA-Public Use
  Company Number: DE-JNJCH-2009001706

PATIENT
  Sex: Female

DRUGS (11)
  1. CETIRIZINE HYDROCHLORIDE [Suspect]
     Indication: PRURITUS
     Dosage: TEXT:1 DF
     Route: 048
     Dates: start: 20061002, end: 20061004
  2. LEVETIRACETAM [Suspect]
     Indication: EPILEPSY
     Dosage: TEXT:NI
     Route: 048
     Dates: start: 20060929, end: 20061003
  3. GLIBENCLAMIDE [Suspect]
     Indication: DIABETES MELLITUS
     Dosage: TEXT:3.5 MG
     Route: 048
     Dates: start: 20060816, end: 20061004
  4. RAMIPRIL [Suspect]
     Indication: HYPERTENSION
     Dosage: TEXT:10 MG
     Route: 048
     Dates: start: 20060815, end: 20061004
  5. DEXAMETHASONE [Suspect]
     Indication: PROPHYLAXIS
     Dosage: TEXT:NI
     Route: 048
     Dates: start: 20060815, end: 20060927
  6. DEXAMETHASONE [Suspect]
     Dosage: TEXT:NI
     Route: 048
     Dates: start: 20060929, end: 20061004
  7. PANTOPRAZOLE SODIUM [Suspect]
     Indication: GASTRIC DISORDER
     Dosage: TEXT:NI
     Route: 048
     Dates: start: 20060815, end: 20061004
  8. RIVASTIGMINE [Suspect]
     Indication: DEMENTIA ALZHEIMER'S TYPE
     Dosage: TEXT:9 MG
     Route: 048
     Dates: start: 20050914, end: 20061004
  9. ENOXAPARIN SODIUM [Suspect]
     Indication: THROMBOSIS PROPHYLAXIS
     Dosage: TEXT:1 DF
     Route: 058
     Dates: start: 20060929, end: 20061004
  10. ISOPROMETHAZINE HYDROCHLORIDE [Suspect]
     Indication: RESTLESSNESS
     Dosage: TEXT:5 DF
     Route: 048
     Dates: start: 20061003, end: 20061003
  11. VALPROATE SODIUM [Suspect]
     Indication: EPILEPSY
     Dosage: TEXT:NI
     Route: 048
     Dates: start: 20061002, end: 20061004

REACTIONS (2)
  - STEVENS-JOHNSON SYNDROME [None]
  - TOXIC EPIDERMAL NECROLYSIS [None]
